FAERS Safety Report 9579452 (Version 2)
Quarter: 2013Q4

REPORT INFORMATION
  Report Type: Spontaneous
  Country: US (occurrence: US)
  Receive Date: 20131001
  Receipt Date: 20131001
  Transmission Date: 20140711
  Serious: No
  Sender: FDA-Public Use
  Company Number: US-AMGEN-USASP2013014743

PATIENT
  Age: 58 Year
  Sex: Female
  Weight: 84.8 kg

DRUGS (8)
  1. ENBREL [Suspect]
     Indication: PSORIATIC ARTHROPATHY
     Dosage: 50 MG, QWK
     Dates: start: 20121129, end: 201303
  2. ENBREL [Suspect]
     Indication: RHEUMATOID ARTHRITIS
  3. PREDNISONE [Concomitant]
     Dosage: 10 UNK, QD
     Route: 048
  4. LEFLUNOMIDE [Concomitant]
     Dosage: 10 UNK, QD
     Route: 048
  5. LISINOPRIL [Concomitant]
     Dosage: 10 UNK, QD
     Route: 048
  6. NASACORT [Concomitant]
     Dosage: UNK
  7. ALBUTEROL                          /00139501/ [Concomitant]
     Dosage: UNK
  8. CLARITIN                           /00917501/ [Concomitant]
     Dosage: UNK UNK, QD

REACTIONS (9)
  - Pain in extremity [Not Recovered/Not Resolved]
  - Musculoskeletal pain [Not Recovered/Not Resolved]
  - Arthralgia [Not Recovered/Not Resolved]
  - Local swelling [Not Recovered/Not Resolved]
  - Back pain [Not Recovered/Not Resolved]
  - Drug ineffective [Not Recovered/Not Resolved]
  - Joint stiffness [Not Recovered/Not Resolved]
  - Pain [Not Recovered/Not Resolved]
  - Upper respiratory tract infection [Recovered/Resolved]
